FAERS Safety Report 5995768-7 (Version None)
Quarter: 2008Q4

REPORT INFORMATION
  Report Type: 
  Country: None (occurrence: None)
  Receive Date: 20081212
  Receipt Date: 20080930
  Transmission Date: 20090506
  Serious: No
  Sender: FDA-Public Use
  Company Number: US-ABBOTT-08P-163-0479564-00

PATIENT
  Sex: Female

DRUGS (1)
  1. HUMIRA [Suspect]
     Indication: DRUG USE FOR UNKNOWN INDICATION
     Dates: start: 20080917

REACTIONS (10)
  - CHILLS [None]
  - FEELING ABNORMAL [None]
  - FEELING HOT [None]
  - INJECTION SITE ERYTHEMA [None]
  - INJECTION SITE SWELLING [None]
  - LYMPHADENOPATHY [None]
  - NERVOUSNESS [None]
  - RASH ERYTHEMATOUS [None]
  - SENSORY DISTURBANCE [None]
  - URTICARIA [None]
